FAERS Safety Report 8933446 (Version 1)
Quarter: 2012Q4

REPORT INFORMATION
  Report Type: 
  Country: GB (occurrence: GB)
  Receive Date: 20121128
  Receipt Date: 20121128
  Transmission Date: 20130627
  Serious: Yes (Hospitalization)
  Sender: FDA-Public Use
  Company Number: GB-TEVA-371899ISR

PATIENT
  Sex: Female

DRUGS (7)
  1. PREDNISOLONE [Suspect]
     Indication: MYALGIA
     Dosage: 15 mg to 20 mg
     Route: 048
     Dates: start: 20110816, end: 20120521
  2. AMLODIPINE [Concomitant]
     Route: 048
     Dates: start: 20090702
  3. BISOPROLOL [Concomitant]
     Route: 048
     Dates: start: 20110702
  4. BUDESONIDE [Concomitant]
     Route: 055
     Dates: start: 20110512
  5. CITALOPRAM [Concomitant]
     Route: 048
     Dates: start: 20110916
  6. OMEPRAZOLE [Concomitant]
     Route: 048
     Dates: start: 20090416
  7. PRAVASTATIN [Concomitant]
     Route: 048
     Dates: start: 20100607

REACTIONS (1)
  - White blood cell count abnormal [Recovering/Resolving]
